FAERS Safety Report 16683757 (Version 4)
Quarter: 2019Q4

REPORT INFORMATION
  Report Type: Report from Study
  Country: DE (occurrence: DE)
  Receive Date: 20190808
  Receipt Date: 20191008
  Transmission Date: 20200122
  Serious: Yes (Hospitalization)
  Sender: FDA-Public Use
  Company Number: DE-PFIZER INC-2019329024

PATIENT
  Age: 8 Decade
  Sex: Male
  Weight: 90 kg

DRUGS (21)
  1. LEUCOVORIN. [Suspect]
     Active Substance: LEUCOVORIN
     Indication: PANCREATIC CARCINOMA METASTATIC
     Dosage: 832.8 MG, CYCLIC
     Route: 042
     Dates: start: 20190614, end: 20190614
  2. FLUOROURACIL. [Suspect]
     Active Substance: FLUOROURACIL
     Dosage: 4996.8 MG, CYCLIC
     Route: 041
     Dates: start: 20190614, end: 20190616
  3. AMLODIPINE [Concomitant]
     Active Substance: AMLODIPINE BESYLATE
     Indication: HYPERTENSION
     Dosage: UNK
     Dates: start: 20180911
  4. ZOFRAN [Concomitant]
     Active Substance: ONDANSETRON HYDROCHLORIDE
     Indication: PROPHYLAXIS
     Dosage: UNK
     Dates: start: 20190614, end: 20190704
  5. FLUOROURACIL. [Suspect]
     Active Substance: FLUOROURACIL
     Dosage: 4996.8 MG, CYCLIC
     Route: 041
     Dates: end: 20190706
  6. METFORMIN [Concomitant]
     Active Substance: METFORMIN HYDROCHLORIDE
     Indication: DIABETES MELLITUS
     Dosage: UNK
     Dates: start: 20180911
  7. UNACID [AMPICILLIN SODIUM;SULBACTAM SODIUM] [Concomitant]
     Active Substance: AMPICILLIN SODIUM\SULBACTAM SODIUM
     Indication: INFECTION
     Dosage: UNK
     Dates: start: 20190620, end: 20190620
  8. DEXAMETHASONE. [Concomitant]
     Active Substance: DEXAMETHASONE
     Indication: PROPHYLAXIS
     Dosage: UNK
     Dates: start: 20190614, end: 20190704
  9. OXALIPLATIN. [Suspect]
     Active Substance: OXALIPLATIN
     Dosage: 176.97 MG, CYCLIC
     Route: 042
     Dates: end: 20190704
  10. PEGILODECAKIN [Suspect]
     Active Substance: PEGILODECAKIN
     Dosage: 80 MG, CYCLIC
     Route: 058
     Dates: end: 20190715
  11. NOVAMINSULFON [Concomitant]
     Active Substance: METAMIZOLE
     Indication: ABDOMINAL PAIN
     Dosage: UNK
     Dates: start: 20190611
  12. OXALIPLATIN. [Suspect]
     Active Substance: OXALIPLATIN
     Indication: PANCREATIC CARCINOMA METASTATIC
     Dosage: 176.97 MG, CYCLIC
     Route: 042
     Dates: start: 20190614, end: 20190614
  13. FLUOROURACIL. [Suspect]
     Active Substance: FLUOROURACIL
     Indication: PANCREATIC CARCINOMA METASTATIC
     Dosage: 832.8 MG, CYCLIC
     Route: 040
     Dates: start: 20190614, end: 20190616
  14. LEUCOVORIN. [Suspect]
     Active Substance: LEUCOVORIN
     Dosage: 832.8 MG, CYCLIC
     Route: 042
     Dates: end: 20190704
  15. TRAMADOL. [Concomitant]
     Active Substance: TRAMADOL
     Indication: PARAESTHESIA
     Dosage: UNK
     Dates: start: 20180911
  16. EMEND [Concomitant]
     Active Substance: APREPITANT
     Indication: PROPHYLAXIS
     Dosage: UNK
     Dates: start: 20190614, end: 20190706
  17. PEGILODECAKIN [Suspect]
     Active Substance: PEGILODECAKIN
     Indication: PANCREATIC CARCINOMA METASTATIC
     Dosage: 80 MG, CYCLIC
     Route: 058
     Dates: start: 20190614, end: 20190618
  18. FLUOROURACIL. [Suspect]
     Active Substance: FLUOROURACIL
     Dosage: 832.8 MG, CYCLIC
     Route: 040
     Dates: end: 20190706
  19. PANTOPRAZOL [PANTOPRAZOLE] [Concomitant]
     Active Substance: PANTOPRAZOLE
     Indication: PROPHYLAXIS
     Dosage: UNK
     Dates: start: 20180911
  20. ALFUZOSIN [Concomitant]
     Active Substance: ALFUZOSIN
     Indication: PROPHYLAXIS
  21. OLMESARTAN [Concomitant]
     Active Substance: OLMESARTAN
     Indication: HYPERTENSION
     Dosage: UNK
     Dates: start: 20180911

REACTIONS (2)
  - General physical health deterioration [Recovering/Resolving]
  - Infection [Not Recovered/Not Resolved]

NARRATIVE: CASE EVENT DATE: 20190620
